FAERS Safety Report 7293093-8 (Version None)
Quarter: 2011Q1

REPORT INFORMATION
  Report Type: 
  Country: None (occurrence: None)
  Receive Date: 20110215
  Receipt Date: 20101203
  Transmission Date: 20110831
  Serious: No
  Sender: FDA-Public Use
  Company Number: US-BAYER-2010-006447

PATIENT
  Sex: Female
  Weight: 104 kg

DRUGS (2)
  1. ALEVE (CAPLET) [Suspect]
     Dosage: 220 MG, QD
     Dates: start: 20101201
  2. SIMVASTATIN [Concomitant]

REACTIONS (2)
  - HEADACHE [None]
  - BACK PAIN [None]
